FAERS Safety Report 4330686-1 (Version None)
Quarter: 2004Q2

REPORT INFORMATION
  Report Type: 
  Country: None (occurrence: None)
  Receive Date: 20040401
  Receipt Date: 20040401
  Transmission Date: 20050107
  Serious: Yes (Hospitalization)
  Sender: FDA-Public Use
  Company Number: None

PATIENT
  Age: 71 Year
  Sex: Male
  Weight: 97.6 kg

DRUGS (14)
  1. FLUOROURACIL [Suspect]
     Indication: RECTAL CANCER METASTATIC
     Dosage: 1050 MG IV
     Route: 042
     Dates: start: 20031006, end: 20031006
  2. LEUCOVORIN CALCIUM [Suspect]
     Indication: RECTAL CANCER METASTATIC
     Dosage: 42 MG IV
     Route: 042
     Dates: start: 20031006, end: 20031006
  3. IRINOTECAN [Suspect]
     Indication: RECTAL CANCER METASTATIC
     Dosage: 260 MG IV
     Route: 042
  4. SERTRALINE HCL [Concomitant]
  5. TERAZOSIN HCL [Concomitant]
  6. RANITIDINE HCL [Concomitant]
  7. LOPERAMIDE HCL [Concomitant]
  8. PROCHLORPERAZINE MALEATE [Concomitant]
  9. OXYCODONE HCL [Concomitant]
  10. ACETAMINOPHEN [Concomitant]
  11. MUPIROCIN [Concomitant]
  12. FEXOFENADINE HCL [Concomitant]
  13. ONDANSETRON HCL [Concomitant]
  14. DEXAMETHASONE [Concomitant]

REACTIONS (1)
  - WHITE BLOOD CELL COUNT DECREASED [None]
